FAERS Safety Report 7427281-4 (Version None)
Quarter: 2011Q2

REPORT INFORMATION
  Report Type: 
  Country: None (occurrence: None)
  Receive Date: 20110420
  Receipt Date: 20110322
  Transmission Date: 20111010
  Serious: No
  Sender: FDA-Public Use
  Company Number: US-MYLANLABS-2011S1006067

PATIENT
  Age: 101 Year
  Sex: Male
  Weight: 68.04 kg

DRUGS (6)
  1. TAMSULOSIN HCL [Suspect]
     Indication: BENIGN PROSTATIC HYPERPLASIA
     Route: 048
     Dates: start: 20110320
  2. M.V.I. [Concomitant]
     Route: 048
  3. NIACIN [Concomitant]
     Route: 048
  4. METOPROLOL [Concomitant]
     Route: 048
  5. CRESTOR [Concomitant]
     Route: 048
  6. PLAVIX [Concomitant]
     Route: 048

REACTIONS (2)
  - DIZZINESS [None]
  - BLOOD PRESSURE DECREASED [None]
